FAERS Safety Report 7818151-8 (Version None)
Quarter: 2011Q4

REPORT INFORMATION
  Report Type: 
  Country: None (occurrence: None)
  Receive Date: 20111017
  Receipt Date: 20110928
  Transmission Date: 20120403
  Serious: Yes (Other)
  Sender: FDA-Public Use
  Company Number: US-BAYER-2011-059818

PATIENT
  Age: 71 Year
  Sex: Female

DRUGS (10)
  1. JANUVIA [Concomitant]
  2. ACEBUTOLOL [Concomitant]
  3. SORAFENIB (RAF KINASE INHIBITOR) [Suspect]
     Indication: HEPATIC NEOPLASM MALIGNANT
     Dosage: 400 MG, BID (200MG 2 TAB BID)
     Route: 048
     Dates: start: 20110616, end: 20110711
  4. AMLODIPINE [Concomitant]
  5. GLIMEPIRIDE [Concomitant]
  6. SORAFENIB (RAF KINASE INHIBITOR) [Suspect]
     Dosage: 200 MG, BID
     Route: 048
     Dates: start: 20110725
  7. OMEPRAZOLE [Concomitant]
     Dosage: UNK MG, UNK
  8. RANITIDINE [Concomitant]
     Dosage: UNK MG, UNK
  9. SINGULAIR [Concomitant]
  10. ZOLPIDEM [Concomitant]

REACTIONS (10)
  - PAIN IN EXTREMITY [None]
  - WEIGHT DECREASED [None]
  - BLISTER [None]
  - DERMATITIS BULLOUS [None]
  - ABASIA [None]
  - TONGUE BLISTERING [None]
  - BLISTER INFECTED [None]
  - ORAL PAIN [None]
  - RASH [None]
  - ALOPECIA [None]
